FAERS Safety Report 4732429-6 (Version None)
Quarter: 2005Q3

REPORT INFORMATION
  Report Type: 
  Country: None (occurrence: None)
  Receive Date: 20050801
  Receipt Date: 20050719
  Transmission Date: 20060218
  Serious: Yes (Hospitalization)
  Sender: FDA-Public Use
  Company Number: 200511382BWH

PATIENT

DRUGS (3)
  1. TRASYLOL [Suspect]
     Indication: AORTIC VALVE REPLACEMENT
     Dosage: INTRAVENOUS
     Route: 042
     Dates: end: 20050701
  2. PROTAMINE [Concomitant]
  3. HEPARIN [Concomitant]

REACTIONS (9)
  - COAGULOPATHY [None]
  - HAEMORRHAGE [None]
  - HEPARIN RESISTANCE [None]
  - OFF LABEL USE [None]
  - PROCEDURAL COMPLICATION [None]
  - PROCEDURAL HYPERTENSION [None]
  - PROCEDURAL HYPOTENSION [None]
  - SUTURE RUPTURE [None]
  - THROMBOSIS IN DEVICE [None]
